FAERS Safety Report 9710117 (Version 2)
Quarter: 2014Q1

REPORT INFORMATION
  Report Type: Report from Study
  Country: US (occurrence: US)
  Receive Date: 20131126
  Receipt Date: 20140114
  Transmission Date: 20141002
  Serious: Yes (Death, Other)
  Sender: FDA-Public Use
  Company Number: PHEH2013US024660

PATIENT
  Sex: Female
  Weight: 72.34 kg

DRUGS (17)
  1. TASIGNA [Suspect]
     Indication: ACUTE LYMPHOCYTIC LEUKAEMIA
     Dosage: 200 MG, BID
     Route: 048
     Dates: start: 20130530, end: 20130711
  2. TASIGNA [Suspect]
     Indication: OFF LABEL USE
  3. VINCRISTINE [Concomitant]
     Dosage: 1 MG, ONCE
     Route: 042
  4. TEMAZEPAM [Concomitant]
     Dosage: 1 DF, QD
  5. HYDROCODONE/ACETAMINOPHEN          /00607101/ [Concomitant]
     Route: 048
  6. LORAZEPAM [Concomitant]
     Dosage: 1 DF, QID
     Route: 048
  7. HALOPERIDOL [Concomitant]
     Dosage: 1 DF, TID
     Route: 048
  8. MORPHINE [Concomitant]
     Route: 048
     Dates: start: 20130530
  9. MORPHINE [Concomitant]
     Dosage: 2 MG/ML, ONE TIME
  10. LIDOCAINE [Concomitant]
     Dosage: 5 %, Q12H
     Route: 062
     Dates: start: 20130530
  11. GABAPENTIN [Concomitant]
     Dosage: 1 DF, QD
     Route: 048
     Dates: start: 20130530
  12. FENTANYL [Concomitant]
     Dosage: 1 DF, EVERY 3 DAYS
     Route: 062
     Dates: start: 20130530
  13. FLUCONAZOLE [Concomitant]
     Dosage: 1 DF, QD
     Route: 048
     Dates: start: 20130530
  14. ACYCLOVIR [Concomitant]
     Indication: HERPES ZOSTER
     Dosage: 400 MG, DAILY
     Route: 048
     Dates: start: 20130530
  15. PREDNISONE [Concomitant]
     Dosage: 2 DF, QD
     Route: 048
     Dates: start: 20130530
  16. NAPROXEN [Concomitant]
     Route: 048
     Dates: start: 20130530
  17. PONATINIB [Concomitant]
     Dosage: 1 DF, QD
     Route: 048
     Dates: start: 20130530

REACTIONS (3)
  - Leukaemia recurrent [Fatal]
  - Acute lymphocytic leukaemia [Unknown]
  - Malignant neoplasm progression [Unknown]
